FAERS Safety Report 8816483 (Version 1)
Quarter: 2012Q4

REPORT INFORMATION
  Report Type: Spontaneous
  Country: US (occurrence: None)
  Receive Date: 20120927
  Receipt Date: 20120927
  Transmission Date: 20130627
  Serious: Yes (Hospitalization)
  Sender: FDA-Public Use
  Company Number: AUR-APL-2012-03873

PATIENT
  Age: 34 Year
  Sex: Male

DRUGS (25)
  1. FLUCONAZOLE [Suspect]
     Indication: CANDIDIASIS
     Route: 048
  2. FLUCONAZOLE [Suspect]
     Indication: CANDIDIASIS
     Route: 042
  3. FLUCONAZOLE [Suspect]
     Indication: CANDIDIASIS
     Route: 048
  4. FLUCONAZOLE [Suspect]
     Indication: CANDIDIASIS
     Route: 048
  5. FLUCONAZOLE [Suspect]
     Indication: CANDIDIASIS
     Route: 048
  6. FLUCONAZOLE [Suspect]
     Indication: CANDIDIASIS
  7. RIFABUTIN [Suspect]
     Indication: DISSEMINATED MYCOBACTERIUM AVIUM COMPLEX INFECTION
     Dosage: Monday, Wednesday and Friday
     Route: 048
  8. FAMOTIDINE (FAMOTIDINE) [Suspect]
     Indication: DRUG USE FOR UNKNOWN INDICATION
     Dosage: 40 mg
     Route: 048
  9. FILGRASTIM [Suspect]
     Indication: DRUG USE FOR UNKNOWN INDICATION
     Dosage: 300 picgm, 1 D
     Route: 058
  10. FILGRASTIM [Suspect]
     Indication: DRUG USE FOR UNKNOWN INDICATION
     Dosage: 1 in 1wk
  11. EMTRICITABINE/TENOFOVIR (EMTRICITABINE W/TENOFOVIR) [Concomitant]
  12. ATAZANAVIR [Concomitant]
  13. RITONAVIR [Concomitant]
  14. ETHAMBUTOL [Concomitant]
  15. MOXIFLOXACIN [Concomitant]
  16. AZITHROMYCIN [Concomitant]
  17. VALGANCICLOVIR [Concomitant]
  18. CHOLECALCIFEROL (COLECALCIFEROL) [Concomitant]
  19. ALPRAZOLAM [Concomitant]
  20. ACETAMINOPHEN/HYDROCODONE (PROCET) [Concomitant]
  21. ACETAMINOPHEN (PARACETAMOL),ACETYLSAL ACID,CAFFEINE CITRATE [Concomitant]
  22. MORPHINE [Concomitant]
  23. HYDROMORPHONE [Concomitant]
  24. VISCOUS LIDOCAINE (LIDOCAINE HYDROCHLORIDE) [Concomitant]
  25. SODIUM CHLORIDE [Concomitant]

REACTIONS (23)
  - Thrombocytopenia [None]
  - Drug interaction [None]
  - Chest pain [None]
  - Food intolerance [None]
  - Nausea [None]
  - Vomiting [None]
  - Discomfort [None]
  - Weight decreased [None]
  - Blood sodium decreased [None]
  - Blood potassium decreased [None]
  - Blood calcium decreased [None]
  - Refusal of treatment by patient [None]
  - Drug dose omission [None]
  - Oesophageal candidiasis [None]
  - Hiatus hernia [None]
  - Oesophageal motility disorder [None]
  - Oesophageal spasm [None]
  - Iron deficiency anaemia [None]
  - Anaemia of chronic disease [None]
  - Leukopenia [None]
  - Pyrexia [None]
  - Odynophagia [None]
  - Sensation of foreign body [None]
